FAERS Safety Report 23440159 (Version 1)
Quarter: 2024Q1

REPORT INFORMATION
  Report Type: Spontaneous
  Country: JP (occurrence: JP)
  Receive Date: 20240124
  Receipt Date: 20240124
  Transmission Date: 20240409
  Serious: No
  Sender: FDA-Public Use
  Company Number: JP-MSD-M2024-02122

PATIENT
  Age: 51 Year
  Sex: Male

DRUGS (1)
  1. LAGEVRIO [Suspect]
     Active Substance: MOLNUPIRAVIR
     Indication: COVID-19 treatment
     Dosage: 600 MILLIGRAM/DAY
     Route: 048
     Dates: start: 20240113

REACTIONS (2)
  - Product use issue [Unknown]
  - Underdose [Unknown]

NARRATIVE: CASE EVENT DATE: 20240113
